FAERS Safety Report 22292551 (Version 1)
Quarter: 2023Q2

REPORT INFORMATION
  Report Type: Spontaneous
  Country: US (occurrence: US)
  Receive Date: 20230508
  Receipt Date: 20230508
  Transmission Date: 20230722
  Serious: No
  Sender: FDA-Public Use
  Company Number: US-JNJFOC-20230441207

PATIENT
  Age: 64 Year
  Sex: Female

DRUGS (1)
  1. ZYRTEC [Suspect]
     Active Substance: CETIRIZINE HYDROCHLORIDE
     Indication: Multiple allergies
     Route: 048
     Dates: start: 20180419

REACTIONS (4)
  - Wrong technique in product usage process [Unknown]
  - Product physical issue [Unknown]
  - Product complaint [Unknown]
  - Product lot number issue [Unknown]

NARRATIVE: CASE EVENT DATE: 20180419
